FAERS Safety Report 6247921-5 (Version None)
Quarter: 2009Q2

REPORT INFORMATION
  Report Type: 
  Country: None (occurrence: None)
  Receive Date: 20090626
  Receipt Date: 20090615
  Transmission Date: 20091009
  Serious: Yes (Other)
  Sender: FDA-Public Use
  Company Number: PHEH2009US01039

PATIENT
  Sex: Male

DRUGS (9)
  1. ZOMETA [Suspect]
     Indication: PROPHYLAXIS
     Dosage: EVERY 4 WEEKS
     Dates: start: 20030101, end: 20070101
  2. RADIATION THERAPY [Concomitant]
  3. LUPRON [Concomitant]
     Dosage: UNK
  4. PERCOCET [Concomitant]
  5. NOVANTRONE [Concomitant]
  6. TAXOTERE [Concomitant]
  7. ARANESP [Concomitant]
  8. CASODEX [Concomitant]
  9. ROXICET [Concomitant]

REACTIONS (13)
  - ANAEMIA [None]
  - ANHEDONIA [None]
  - ANXIETY [None]
  - ASTHENIA [None]
  - BACK PAIN [None]
  - BRONCHITIS [None]
  - DEPRESSION [None]
  - FATIGUE [None]
  - GENERAL PHYSICAL HEALTH DETERIORATION [None]
  - HAEMATURIA [None]
  - OSTEONECROSIS [None]
  - PAIN [None]
  - QUALITY OF LIFE DECREASED [None]
